FAERS Safety Report 14972951 (Version 17)
Quarter: 2020Q3

REPORT INFORMATION
  Report Type: Spontaneous
  Country: US (occurrence: US)
  Receive Date: 20180605
  Receipt Date: 20200911
  Transmission Date: 20201102
  Serious: Yes (Hospitalization, Other)
  Sender: FDA-Public Use
  Company Number: US-PFIZER INC-2018224760

PATIENT
  Age: 67 Year
  Sex: Female

DRUGS (201)
  1. DILANTIN [Suspect]
     Active Substance: PHENYTOIN
     Dosage: 300 MG, DAILY AT BEDTIME
     Route: 048
     Dates: start: 20110928, end: 20111002
  2. DILANTIN [Suspect]
     Active Substance: PHENYTOIN
     Dosage: 2 DF(TABLETS), TWICE DAILY
     Dates: start: 19960315
  3. DILANTIN [Suspect]
     Active Substance: PHENYTOIN
     Dosage: 3 DF (TABLETS), BEDTIME
     Dates: start: 20110909
  4. DILANTIN [Suspect]
     Active Substance: PHENYTOIN
     Dosage: UNK
     Dates: start: 19960104
  5. DILANTIN [Suspect]
     Active Substance: PHENYTOIN
     Dosage: UNK
     Dates: start: 20090619
  6. DILANTIN [Suspect]
     Active Substance: PHENYTOIN
     Dosage: UNK
     Dates: start: 20110428
  7. DILANTIN [Suspect]
     Active Substance: PHENYTOIN
     Dosage: UNK
     Dates: start: 20111001
  8. PHENOBARBITAL. [Concomitant]
     Active Substance: PHENOBARBITAL
     Dosage: UNK
     Dates: start: 20111004
  9. PHENOBARBITAL. [Concomitant]
     Active Substance: PHENOBARBITAL
     Dosage: UNK
     Dates: start: 20130213
  10. PHENOBARBITAL. [Concomitant]
     Active Substance: PHENOBARBITAL
     Dosage: 2 DF (TABLETS), TWICE DAILY
     Dates: start: 19960712
  11. PHENOBARBITAL. [Concomitant]
     Active Substance: PHENOBARBITAL
     Dosage: 2 TABLET MORNING 4 TABLET EVENING
     Dates: start: 20070803
  12. PHENOBARBITAL. [Concomitant]
     Active Substance: PHENOBARBITAL
     Dosage: 2 TABLET MORNING 4 TABLET EVENING
     Dates: start: 20080328
  13. PHENOBARBITAL. [Concomitant]
     Active Substance: PHENOBARBITAL
     Dosage: 1 TABLET MORNING 2 TABLET EVENING
     Dates: start: 20110706
  14. LUMINAL [Concomitant]
     Active Substance: PHENOBARBITAL SODIUM
     Dosage: 129.6 MG, DAILY AT BEDTIME
     Route: 048
     Dates: start: 20110428, end: 20110928
  15. KEPPRA [Concomitant]
     Active Substance: LEVETIRACETAM
     Dosage: 1000 MG, 2X/DAY (EVERY 12 HOURS)
     Route: 048
     Dates: start: 20160927, end: 20160927
  16. PRAVACHOL [Concomitant]
     Active Substance: PRAVASTATIN SODIUM
     Dosage: 80 MG, 1X/DAY
     Route: 048
  17. METOPROLOL SUCCINATE. [Concomitant]
     Active Substance: METOPROLOL SUCCINATE
     Dosage: 50 MG, 1X/DAY
     Route: 048
  18. BUROWS [Concomitant]
     Dosage: UNK, 2X/DAY
     Dates: start: 20120317
  19. CLINDAMYCIN. [Concomitant]
     Active Substance: CLINDAMYCIN
     Dosage: 600MG/4ML INJ
  20. GLYBURIDE. [Concomitant]
     Active Substance: GLYBURIDE
     Dosage: UNK
  21. BUMEX [Concomitant]
     Active Substance: BUMETANIDE
     Indication: RENAL DISORDER
     Dosage: UNK
  22. DILANTIN [Suspect]
     Active Substance: PHENYTOIN
     Dosage: 200 MG, DAILY EVERY 12 HOURS
     Route: 048
     Dates: start: 20111002, end: 20111004
  23. DILANTIN [Suspect]
     Active Substance: PHENYTOIN
     Dosage: 2 DF, 2X/DAY
     Route: 048
     Dates: start: 20110929
  24. DILANTIN [Suspect]
     Active Substance: PHENYTOIN
     Dosage: 3 DF (TABLETS), BEDTIME
     Dates: start: 20110809
  25. DILANTIN [Suspect]
     Active Substance: PHENYTOIN
     Dosage: UNK
     Dates: start: 20080530
  26. DILANTIN [Suspect]
     Active Substance: PHENYTOIN
     Dosage: UNK
     Dates: start: 20101008
  27. DILANTIN [Suspect]
     Active Substance: PHENYTOIN
     Dosage: UNK
     Dates: start: 20101012
  28. PHENOBARBITAL. [Concomitant]
     Active Substance: PHENOBARBITAL
     Dosage: UNK, TWICE DAILY
     Dates: start: 19951201
  29. PHENOBARBITAL. [Concomitant]
     Active Substance: PHENOBARBITAL
     Dosage: UNK
     Dates: start: 20010425
  30. PHENOBARBITAL. [Concomitant]
     Active Substance: PHENOBARBITAL
     Dosage: UNK
     Dates: start: 20010907
  31. PHENOBARBITAL. [Concomitant]
     Active Substance: PHENOBARBITAL
     Dosage: UNK
     Dates: start: 20080530
  32. PHENOBARBITAL. [Concomitant]
     Active Substance: PHENOBARBITAL
     Dosage: UNK
     Dates: start: 20110809
  33. PHENOBARBITAL. [Concomitant]
     Active Substance: PHENOBARBITAL
     Dosage: UNK
     Dates: start: 20111001
  34. PHENOBARBITAL. [Concomitant]
     Active Substance: PHENOBARBITAL
     Dosage: 2 TABLET MORNING 4 TABLET EVENING
     Dates: start: 20080521
  35. PHENOBARBITAL. [Concomitant]
     Active Substance: PHENOBARBITAL
     Dosage: 2 TABLET MORNING 4 TABLET EVENING
     Dates: start: 20090718
  36. PHENOBARBITAL. [Concomitant]
     Active Substance: PHENOBARBITAL
     Dosage: 2 TABLET MORNING 4 TABLET EVENING
     Dates: start: 20091202
  37. PHENOBARBITAL. [Concomitant]
     Active Substance: PHENOBARBITAL
     Dosage: 1 DF (TABLET), DAILY
     Dates: start: 20140908
  38. KEPPRA [Concomitant]
     Active Substance: LEVETIRACETAM
     Dosage: UNK, TWICE DAILY
     Dates: start: 20180417
  39. VITAMIN D [Concomitant]
     Active Substance: VITAMIN D NOS
     Dosage: UNK
     Dates: start: 20120331, end: 20180417
  40. VITAMIN D2 [Concomitant]
     Active Substance: ERGOCALCIFEROL
     Dosage: 5000 IU, WEEKLY
     Route: 048
  41. IRON [Concomitant]
     Active Substance: IRON
     Indication: SUPPLEMENTATION THERAPY
     Dosage: UNK
  42. ZONISAMIDE. [Concomitant]
     Active Substance: ZONISAMIDE
     Indication: EPILEPSY
     Dosage: 4 DF (TABLET), EVENING
     Dates: start: 20120331
  43. ZONISAMIDE. [Concomitant]
     Active Substance: ZONISAMIDE
     Dosage: 2 DF (TABLET), EVERYDAY
     Dates: start: 20140908
  44. ZONISAMIDE. [Concomitant]
     Active Substance: ZONISAMIDE
     Dosage: 4 DF (TABLET), EVENING
     Dates: start: 20150629
  45. ZONISAMIDE. [Concomitant]
     Active Substance: ZONISAMIDE
     Dosage: 1 (UNKNOWN FORMULATION), AT EVERY BEDTIME
     Dates: start: 20160927
  46. ZONISAMIDE. [Concomitant]
     Active Substance: ZONISAMIDE
     Dosage: 1 (UNKNOWN FORMULATION), AT EVERY BEDTIME
     Dates: start: 20180417
  47. DILANTIN [Suspect]
     Active Substance: PHENYTOIN
     Dosage: 2 DF(TABLETS), TWICE DAILY
     Dates: start: 20110318
  48. DILANTIN [Suspect]
     Active Substance: PHENYTOIN
     Dosage: UNK
     Dates: start: 20110426
  49. PHENOBARBITAL. [Concomitant]
     Active Substance: PHENOBARBITAL
     Dosage: UNK
     Dates: start: 20110922
  50. PHENOBARBITAL. [Concomitant]
     Active Substance: PHENOBARBITAL
     Dosage: 2 TABLET MORNING 4 TABLET EVENING
     Dates: start: 20071024
  51. PHENOBARBITAL. [Concomitant]
     Active Substance: PHENOBARBITAL
     Dosage: 2 TABLET MORNING 4 TABLET EVENING
     Dates: start: 20090522
  52. KEPPRA [Concomitant]
     Active Substance: LEVETIRACETAM
     Dosage: UNK
  53. LISINOPRIL. [Concomitant]
     Active Substance: LISINOPRIL
     Dosage: 5 MG, 1X/DAY
     Route: 048
  54. FUROSEMIDE. [Concomitant]
     Active Substance: FUROSEMIDE
     Dosage: 20 MG, 1X/DAY
     Route: 048
  55. CALCIUM CARBONATE. [Concomitant]
     Active Substance: CALCIUM CARBONATE
     Dosage: 500MG CHEWTAB (200MG ELEM)
  56. ERGOCALCIFEROL. [Concomitant]
     Active Substance: ERGOCALCIFEROL
     Dosage: UNK
  57. METOPROLOL. [Concomitant]
     Active Substance: METOPROLOL
     Dosage: UNK
  58. ATIVAN [Concomitant]
     Active Substance: LORAZEPAM
     Indication: SEIZURE
     Dosage: UNK UNK, AS NEEDED
     Route: 030
     Dates: start: 20180417
  59. DILANTIN [Suspect]
     Active Substance: PHENYTOIN
     Indication: IDIOPATHIC GENERALISED EPILEPSY
     Dosage: 200 MG, 2X/DAY
     Route: 048
     Dates: start: 20101221, end: 20101224
  60. DILANTIN [Suspect]
     Active Substance: PHENYTOIN
     Indication: SEIZURE
     Dosage: 300 MG, 1X/DAY,(BEDTIME)
     Route: 048
     Dates: start: 20110428
  61. DILANTIN [Suspect]
     Active Substance: PHENYTOIN
     Dosage: 2 DF(TABLETS), TWICE DAILY
     Dates: start: 20071024
  62. DILANTIN [Suspect]
     Active Substance: PHENYTOIN
     Dosage: 2 DF(TABLETS), TWICE DAILY
     Dates: start: 20080114
  63. DILANTIN [Suspect]
     Active Substance: PHENYTOIN
     Dosage: 2 DF(TABLETS), TWICE DAILY
     Dates: start: 20080328
  64. DILANTIN [Suspect]
     Active Substance: PHENYTOIN
     Dosage: 2 DF(TABLETS), TWICE DAILY
     Dates: start: 20090718
  65. DILANTIN [Suspect]
     Active Substance: PHENYTOIN
     Dosage: 2 DF(TABLETS), TWICE DAILY
     Dates: start: 20091202
  66. DILANTIN [Suspect]
     Active Substance: PHENYTOIN
     Dosage: 2 DF(TABLETS), TWICE DAILY
     Dates: start: 20100908
  67. DILANTIN [Suspect]
     Active Substance: PHENYTOIN
     Dosage: 3 DF (TABLETS), BEDTIME
     Dates: start: 20110706
  68. DILANTIN [Suspect]
     Active Substance: PHENYTOIN
     Dosage: UNK, TWICE DAILY
     Dates: start: 19950307
  69. DILANTIN [Suspect]
     Active Substance: PHENYTOIN
     Dosage: UNK
     Dates: start: 20011211
  70. DILANTIN [Suspect]
     Active Substance: PHENYTOIN
     Dosage: UNK
     Dates: start: 20110706
  71. DILANTIN [Suspect]
     Active Substance: PHENYTOIN
     Dosage: UNK
     Dates: start: 20160927
  72. PHENOBARBITAL. [Concomitant]
     Active Substance: PHENOBARBITAL
     Dosage: UNK, TWICE DAILY
     Dates: start: 19950307
  73. PHENOBARBITAL. [Concomitant]
     Active Substance: PHENOBARBITAL
     Dosage: UNK
     Dates: start: 19960122
  74. PHENOBARBITAL. [Concomitant]
     Active Substance: PHENOBARBITAL
     Dosage: UNK
     Dates: start: 20011105
  75. PHENOBARBITAL. [Concomitant]
     Active Substance: PHENOBARBITAL
     Dosage: UNK
     Dates: start: 20101223
  76. PHENOBARBITAL. [Concomitant]
     Active Substance: PHENOBARBITAL
     Dosage: 2 TABLET MORNING 4 TABLET EVENING
     Dates: start: 20080916
  77. PHENOBARBITAL. [Concomitant]
     Active Substance: PHENOBARBITAL
     Dosage: 2 TABLET MORNING 4 TABLET EVENING
     Dates: start: 20080916
  78. PHENOBARBITAL. [Concomitant]
     Active Substance: PHENOBARBITAL
     Dosage: 1 TABLET MORNING 2 TABLET EVENING
     Dates: start: 20110909
  79. PHENOBARBITAL. [Concomitant]
     Active Substance: PHENOBARBITAL
     Dosage: 2 TABLET MORNING 4 TABLET EVENING
     Dates: start: 20120331
  80. PHENOBARBITAL. [Concomitant]
     Active Substance: PHENOBARBITAL
     Dosage: 2 TABLET MORNING 4 TABLET EVENING
     Dates: start: 20120401
  81. LUMINAL [Concomitant]
     Active Substance: PHENOBARBITAL SODIUM
     Indication: SEIZURE
     Dosage: 32.4 MG, 2X/DAY
     Route: 048
     Dates: start: 20101221, end: 20110426
  82. LUMINAL [Concomitant]
     Active Substance: PHENOBARBITAL SODIUM
     Dosage: 64.8 MG, EVERY MORNING
     Route: 048
     Dates: start: 20110428, end: 20110928
  83. DIPHENHYDRAMINE HCL [Concomitant]
     Active Substance: DIPHENHYDRAMINE HYDROCHLORIDE
     Indication: PRURITUS
     Dosage: 25 MG, AS NEEDED (EVERY 6 HOURS)
     Route: 048
  84. LANTUS [Concomitant]
     Active Substance: INSULIN GLARGINE
     Dosage: UNK
     Route: 058
  85. METFORMIN HCL [Concomitant]
     Active Substance: METFORMIN HYDROCHLORIDE
     Dosage: 500 MG, 2X/DAY
     Route: 048
  86. NOVOLOG [Concomitant]
     Active Substance: INSULIN ASPART
     Dosage: UNK
     Route: 058
  87. HEPARIN [Concomitant]
     Active Substance: HEPARIN SODIUM
     Dosage: 5,000 UNITS/ML
  88. ZONISAMIDE. [Concomitant]
     Active Substance: ZONISAMIDE
     Dosage: 1 (UNKNOWN FORMULATION), AT EVERY BEDTIME
     Dates: start: 20180424
  89. ZONISAMIDE. [Concomitant]
     Active Substance: ZONISAMIDE
     Dosage: UNK
  90. DILANTIN [Suspect]
     Active Substance: PHENYTOIN
     Dosage: 1 DF, UNK, EVERY TWELVE HOURS
     Route: 048
     Dates: start: 20111129
  91. DILANTIN [Suspect]
     Active Substance: PHENYTOIN
     Dosage: 3 DF(TABLETS), TWICE DAILY
     Dates: start: 19960229
  92. DILANTIN [Suspect]
     Active Substance: PHENYTOIN
     Dosage: 2 DF(TABLETS), TWICE DAILY
     Dates: start: 20090619
  93. DILANTIN [Suspect]
     Active Substance: PHENYTOIN
     Dosage: UNK
     Dates: start: 20021204
  94. PHENOBARBITAL. [Concomitant]
     Active Substance: PHENOBARBITAL
     Dosage: UNK, TWICE DAILY
     Dates: start: 19950409
  95. PHENOBARBITAL. [Concomitant]
     Active Substance: PHENOBARBITAL
     Dosage: UNK
     Dates: start: 20101012
  96. PHENOBARBITAL. [Concomitant]
     Active Substance: PHENOBARBITAL
     Dosage: UNK
     Dates: start: 20110426
  97. PHENOBARBITAL. [Concomitant]
     Active Substance: PHENOBARBITAL
     Dosage: UNK
     Dates: start: 20110428
  98. PHENOBARBITAL. [Concomitant]
     Active Substance: PHENOBARBITAL
     Dosage: UNK
     Dates: start: 20111129
  99. PHENOBARBITAL. [Concomitant]
     Active Substance: PHENOBARBITAL
     Dosage: 64.8 MG, 1X/DAY
     Route: 048
  100. PHENOBARBITAL. [Concomitant]
     Active Substance: PHENOBARBITAL
     Dosage: 2 DF (TABLETS), TWICE DAILY
     Dates: start: 19960315
  101. PHENOBARBITAL. [Concomitant]
     Active Substance: PHENOBARBITAL
     Dosage: 2 TABLET MORNING 4 TABLET EVENING
     Dates: start: 20080114
  102. PHENOBARBITAL. [Concomitant]
     Active Substance: PHENOBARBITAL
     Dosage: 2 TABLET MORNING 4 TABLET EVENING
     Dates: start: 20090619
  103. PHENOBARBITAL. [Concomitant]
     Active Substance: PHENOBARBITAL
     Dosage: 2 TABLET MORNING 4 TABLET EVENING
     Dates: start: 20110318
  104. PHENOBARBITAL. [Concomitant]
     Active Substance: PHENOBARBITAL
     Dosage: 4 DF (TABLET), EVERY TWELVE HOURS
     Route: 048
     Dates: start: 20111129
  105. KEPPRA [Concomitant]
     Active Substance: LEVETIRACETAM
     Dosage: UNK, EVERY 12 HOURS
     Dates: start: 20160927
  106. PERCOCET [Concomitant]
     Active Substance: ACETAMINOPHEN\OXYCODONE HYDROCHLORIDE
     Dosage: 5 MG?325 MG, EVERY 6?8 HOURS
     Route: 048
  107. VITAMIN D [Concomitant]
     Active Substance: VITAMIN D NOS
     Indication: SUPPLEMENTATION THERAPY
     Dosage: 2000 IU, 1X/DAY
     Route: 048
  108. VITAMIN D [Concomitant]
     Active Substance: VITAMIN D NOS
     Dosage: UNK; EVERY 14 DAYS
  109. OXYBUTYNIN CHLORIDE. [Concomitant]
     Active Substance: OXYBUTYNIN CHLORIDE
     Dosage: 10 MG, 1X/DAY
     Route: 048
  110. ULORIC [Concomitant]
     Active Substance: FEBUXOSTAT
     Dosage: 40 MG, 1X/DAY
     Route: 048
  111. POTASSIUM CHLORIDE. [Concomitant]
     Active Substance: POTASSIUM CHLORIDE
     Dosage: 10 MEQ, 1X/DAY
     Route: 048
  112. ZETIA [Concomitant]
     Active Substance: EZETIMIBE
     Dosage: 10 MG, 1X/DAY
     Route: 048
  113. ALLOPURINOL. [Concomitant]
     Active Substance: ALLOPURINOL
     Dosage: UNK
  114. SENNA ALEXANDRINA [Concomitant]
     Active Substance: SENNA LEAF
     Dosage: UNK
  115. VANCOMYCIN [Concomitant]
     Active Substance: VANCOMYCIN
     Dosage: UNK
  116. FISH OIL [Concomitant]
     Active Substance: FISH OIL
     Indication: SUPPLEMENTATION THERAPY
     Dosage: UNK
  117. DILANTIN [Suspect]
     Active Substance: PHENYTOIN
     Dosage: 4 DF(TABLETS) AT BEDTIME
     Dates: start: 19980717
  118. DILANTIN [Suspect]
     Active Substance: PHENYTOIN
     Dosage: 4 DF(TABLETS) AT BEDTIME
     Dates: start: 19980917
  119. DILANTIN [Suspect]
     Active Substance: PHENYTOIN
     Dosage: 2 DF(TABLETS), TWICE DAILY
     Dates: start: 20080229
  120. DILANTIN [Suspect]
     Active Substance: PHENYTOIN
     Dosage: 2 DF(TABLETS), TWICE DAILY
     Dates: start: 20080916
  121. DILANTIN [Suspect]
     Active Substance: PHENYTOIN
     Dosage: 2 DF(TABLETS), TWICE DAILY
     Dates: start: 20100112
  122. DILANTIN [Suspect]
     Active Substance: PHENYTOIN
     Dosage: UNK, TWICE DAILY
     Dates: start: 19950409
  123. DILANTIN [Suspect]
     Active Substance: PHENYTOIN
     Dosage: UNK
     Dates: start: 19981106
  124. DILANTIN [Suspect]
     Active Substance: PHENYTOIN
     Dosage: UNK, TWICE DAILY
     Dates: start: 20080521
  125. DILANTIN [Suspect]
     Active Substance: PHENYTOIN
     Dosage: UNK, 2X/DAY (TWICE DAILY)
     Dates: start: 20080916
  126. DILANTIN [Suspect]
     Active Substance: PHENYTOIN
     Dosage: UNK
     Dates: start: 20101221
  127. DILANTIN [Suspect]
     Active Substance: PHENYTOIN
     Dosage: UNK
     Dates: start: 20110809
  128. DILANTIN [Suspect]
     Active Substance: PHENYTOIN
     Dosage: UNK
     Dates: start: 20111129
  129. PHENOBARBITAL. [Concomitant]
     Active Substance: PHENOBARBITAL
     Dosage: UNK
     Dates: start: 19951117
  130. PHENOBARBITAL. [Concomitant]
     Active Substance: PHENOBARBITAL
     Dosage: UNK
     Dates: start: 20101008
  131. PHENOBARBITAL. [Concomitant]
     Active Substance: PHENOBARBITAL
     Dosage: 2 TABLET MORNING 4 TABLET EVENING
     Dates: start: 20090818
  132. PHENOBARBITAL. [Concomitant]
     Active Substance: PHENOBARBITAL
     Dosage: 2 TABLET MORNING 4 TABLET EVENING
     Dates: start: 20100112
  133. PHENOBARBITAL. [Concomitant]
     Active Substance: PHENOBARBITAL
     Dosage: 1 TABLET MORNING 2 TABLET EVENING
     Dates: start: 20110809
  134. PHENOBARBITAL. [Concomitant]
     Active Substance: PHENOBARBITAL
     Dosage: 2 TABLET MORNING 4 TABLET EVENING
     Dates: start: 20120331
  135. PHENOBARBITAL. [Concomitant]
     Active Substance: PHENOBARBITAL
     Dosage: 2 TABLET MORNING 4 TABLET EVENING
     Dates: start: 20150629
  136. LANTUS [Concomitant]
     Active Substance: INSULIN GLARGINE
     Indication: DIABETES MELLITUS
     Dosage: 100 ML, 1X/DAY
     Route: 058
  137. ASPIR 81 [Concomitant]
     Active Substance: ASPIRIN
     Dosage: 81 MG, 1X/DAY
     Route: 048
  138. TOPROL XL [Concomitant]
     Active Substance: METOPROLOL SUCCINATE
     Indication: HYPERTENSION
     Dosage: 50 MG, 1X/DAY
     Route: 048
  139. TOPROL XL [Concomitant]
     Active Substance: METOPROLOL SUCCINATE
     Dosage: UNK
  140. LOVASTATIN. [Concomitant]
     Active Substance: LOVASTATIN
     Dosage: 80 MG, 1X/DAY
     Route: 048
  141. METOPROLOL SUCCINATE. [Concomitant]
     Active Substance: METOPROLOL SUCCINATE
     Dosage: 25 MG, 1X/DAY
     Route: 048
  142. LIPITOR [Concomitant]
     Active Substance: ATORVASTATIN CALCIUM
     Dosage: 40 MG, 1X/DAY
     Route: 048
  143. METOPROLOL. [Concomitant]
     Active Substance: METOPROLOL
     Indication: HYPERTENSION
     Dosage: UNK
     Dates: start: 20120331, end: 20180417
  144. VITAMIN C [Concomitant]
     Active Substance: ASCORBIC ACID
     Indication: SUPPLEMENTATION THERAPY
     Dosage: UNK
  145. LOSARTAN. [Concomitant]
     Active Substance: LOSARTAN
     Indication: HYPERTENSION
     Dosage: UNK
  146. LORAZEPAM. [Concomitant]
     Active Substance: LORAZEPAM
     Dosage: UNK UNK, EVERY 4 HOURS AS NEEDED
     Route: 030
     Dates: start: 20180424
  147. ZONISAMIDE. [Concomitant]
     Active Substance: ZONISAMIDE
     Dosage: 1 (UNKNOWN FORMULATION), AT EVERY BEDTIME
     Dates: start: 20120401
  148. ZONISAMIDE. [Concomitant]
     Active Substance: ZONISAMIDE
     Dosage: 1 (UNKNOWN FORMULATION), AT EVERY BEDTIME
     Dates: start: 20130213
  149. ZONISAMIDE. [Concomitant]
     Active Substance: ZONISAMIDE
     Dosage: UNK, DAILY
     Dates: start: 20140904
  150. DILANTIN [Suspect]
     Active Substance: PHENYTOIN
     Dosage: 500 MG, DAILY
     Route: 048
     Dates: start: 20110929, end: 20110929
  151. DILANTIN [Suspect]
     Active Substance: PHENYTOIN
     Dosage: 3 DF(TABLETS), TWICE DAILY
     Dates: start: 19960712
  152. DILANTIN [Suspect]
     Active Substance: PHENYTOIN
     Dosage: 3 DF(TABLETS), TWICE DAILY
     Dates: start: 19970718
  153. DILANTIN [Suspect]
     Active Substance: PHENYTOIN
     Dosage: 2 DF(TABLETS), TWICE DAILY
     Dates: start: 20080521
  154. DILANTIN [Suspect]
     Active Substance: PHENYTOIN
     Dosage: 2 DF(TABLETS), TWICE DAILY
     Dates: start: 20081203
  155. DILANTIN [Suspect]
     Active Substance: PHENYTOIN
     Dosage: 2 DF(TABLETS), TWICE DAILY
     Dates: start: 20090522
  156. DILANTIN [Suspect]
     Active Substance: PHENYTOIN
     Dosage: 2 DF(TABLETS), TWICE DAILY
     Dates: start: 20090818
  157. DILANTIN [Suspect]
     Active Substance: PHENYTOIN
     Dosage: UNK
     Dates: start: 20110922
  158. DILANTIN [Suspect]
     Active Substance: PHENYTOIN
     Dosage: UNK
     Dates: start: 20110928
  159. DILANTIN [Suspect]
     Active Substance: PHENYTOIN
     Dosage: UNK
     Dates: start: 20111004
  160. PHENOBARBITAL. [Concomitant]
     Active Substance: PHENOBARBITAL
     Dosage: UNK, TWICE DAILY
     Dates: start: 19950322
  161. PHENOBARBITAL. [Concomitant]
     Active Substance: PHENOBARBITAL
     Dosage: UNK
     Dates: start: 20011010
  162. PHENOBARBITAL. [Concomitant]
     Active Substance: PHENOBARBITAL
     Dosage: UNK
     Dates: start: 20090619
  163. PHENOBARBITAL. [Concomitant]
     Active Substance: PHENOBARBITAL
     Dosage: 129.6 MG, 1X/DAY
     Route: 048
  164. PHENOBARBITAL. [Concomitant]
     Active Substance: PHENOBARBITAL
     Dosage: 2 TABLET MORNING 4 TABLET EVENING
     Dates: start: 20080521
  165. PHENOBARBITAL. [Concomitant]
     Active Substance: PHENOBARBITAL
     Dosage: 2 TABLET MORNING 4 TABLET EVENING
     Dates: start: 20081203
  166. KEPPRA [Concomitant]
     Active Substance: LEVETIRACETAM
     Indication: EPILEPSY
     Dosage: 500 MG, 2X/DAY
  167. KEPPRA [Concomitant]
     Active Substance: LEVETIRACETAM
     Dosage: 750 MG, 2X/DAY  (EVERY 12 HOURS)
     Route: 048
     Dates: start: 20160929, end: 20160929
  168. KEPPRA [Concomitant]
     Active Substance: LEVETIRACETAM
     Dosage: UNK, TWICE DAILY
     Dates: start: 20180424
  169. BACLOFEN. [Concomitant]
     Active Substance: BACLOFEN
     Dosage: 10 MG, 3X/DAY
     Route: 048
  170. LISINOPRIL. [Concomitant]
     Active Substance: LISINOPRIL
     Dosage: 80 MG, 1X/DAY
     Route: 048
  171. DIOVAN [Concomitant]
     Active Substance: VALSARTAN
     Dosage: 80 MG, 1X/DAY
     Route: 048
  172. DICLOFENAC SODIUM. [Concomitant]
     Active Substance: DICLOFENAC SODIUM
     Dosage: 1 %, 3X/DAY
  173. DEXTROSE 5% [Concomitant]
     Active Substance: DEXTROSE
     Dosage: 100ML/500ML
  174. CITALOPRAM [Concomitant]
     Active Substance: CITALOPRAM HYDROBROMIDE
     Indication: DEPRESSION
     Dosage: UNK
     Dates: start: 20120401, end: 20150629
  175. ZONISAMIDE. [Concomitant]
     Active Substance: ZONISAMIDE
     Indication: EPILEPSY
     Dosage: 1 DF (CAP) DAY AND BDTIME; INCREASE BY 100MG EACH WEEK TO TARGET 400MG EVERY BEDTIME BY WEEK 4
     Route: 048
     Dates: start: 20111129
  176. ZONISAMIDE. [Concomitant]
     Active Substance: ZONISAMIDE
     Dosage: 1 (UNKNOWN FORMULATION), AT EVERY BEDTIME
     Dates: start: 20120331
  177. DILANTIN [Suspect]
     Active Substance: PHENYTOIN
     Dosage: 2 DF, 2X/DAY
     Route: 048
     Dates: start: 20111129
  178. DILANTIN [Suspect]
     Active Substance: PHENYTOIN
     Dosage: 300 MG, DAILY AT NIGHT
     Route: 048
     Dates: start: 20160926, end: 20160927
  179. DILANTIN [Suspect]
     Active Substance: PHENYTOIN
     Dosage: 2 DF(TABLETS), TWICE DAILY
     Dates: start: 20070803
  180. DILANTIN [Suspect]
     Active Substance: PHENYTOIN
     Dosage: UNK, TWICE DAILY
     Dates: start: 19950322
  181. DILANTIN [Suspect]
     Active Substance: PHENYTOIN
     Dosage: UNK
     Dates: start: 19951117
  182. DILANTIN [Suspect]
     Active Substance: PHENYTOIN
     Dosage: UNK
     Dates: start: 20101223
  183. PHENOBARBITAL. [Concomitant]
     Active Substance: PHENOBARBITAL
     Indication: SEIZURE
     Dosage: UNK
     Dates: start: 1966, end: 2014
  184. PHENOBARBITAL. [Concomitant]
     Active Substance: PHENOBARBITAL
     Dosage: UNK
     Dates: start: 19960104
  185. PHENOBARBITAL. [Concomitant]
     Active Substance: PHENOBARBITAL
     Dosage: UNK
     Dates: start: 19980717
  186. PHENOBARBITAL. [Concomitant]
     Active Substance: PHENOBARBITAL
     Dosage: UNK
     Dates: start: 20101221
  187. PHENOBARBITAL. [Concomitant]
     Active Substance: PHENOBARBITAL
     Dosage: UNK
     Dates: start: 20110706
  188. PHENOBARBITAL. [Concomitant]
     Active Substance: PHENOBARBITAL
     Dosage: UNK
     Dates: start: 20110928
  189. PHENOBARBITAL. [Concomitant]
     Active Substance: PHENOBARBITAL
     Dosage: 2 DF (TABLETS), TWICE DAILY
     Dates: start: 19960229
  190. PHENOBARBITAL. [Concomitant]
     Active Substance: PHENOBARBITAL
     Dosage: 2 TABLET MORNING 4 TABLET EVENING
     Dates: start: 20080229
  191. PHENOBARBITAL. [Concomitant]
     Active Substance: PHENOBARBITAL
     Dosage: 2 TABLET MORNING 4 TABLET EVENING
     Dates: start: 20100908
  192. COLCHICINE. [Concomitant]
     Active Substance: COLCHICINE
     Dosage: 0.6 MG, (EVERY 6?8 HOURS)
     Route: 048
  193. HYDROCHLOROTHIAZIDE. [Concomitant]
     Active Substance: HYDROCHLOROTHIAZIDE
     Dosage: 25 MG, 1X/DAY
     Route: 048
  194. LOVASTATIN. [Concomitant]
     Active Substance: LOVASTATIN
     Dosage: 40 MG, 1X/DAY
     Route: 048
  195. NORVASC [Concomitant]
     Active Substance: AMLODIPINE BESYLATE
     Dosage: 5 MG, 1X/DAY
     Route: 048
  196. PRAVASTATIN. [Concomitant]
     Active Substance: PRAVASTATIN
     Indication: HYPERLIPIDAEMIA
     Dosage: UNK
     Dates: start: 20120331, end: 20180417
  197. PRAVASTATIN. [Concomitant]
     Active Substance: PRAVASTATIN
     Dosage: UNK
  198. CALCIUM [Concomitant]
     Active Substance: CALCIUM
     Indication: SUPPLEMENTATION THERAPY
     Dosage: UNK
     Dates: start: 20120401, end: 20180417
  199. CALCIUM [Concomitant]
     Active Substance: CALCIUM
     Dosage: UNK
  200. ASPIRIN. [Concomitant]
     Active Substance: ASPIRIN
     Indication: PROPHYLAXIS
     Dosage: UNK
     Dates: start: 20120331, end: 20180417
  201. ZONISAMIDE. [Concomitant]
     Active Substance: ZONISAMIDE
     Indication: EPILEPSY
     Dosage: 1 (UNKNOWN FORMULATION), AT EVERY BEDTIME
     Dates: start: 20111129

REACTIONS (18)
  - Anxiety [Not Recovered/Not Resolved]
  - Amnesia [Not Recovered/Not Resolved]
  - Dysarthria [Not Recovered/Not Resolved]
  - Cerebral atrophy [Unknown]
  - Thoracic spinal stenosis [Unknown]
  - Persistent depressive disorder [Unknown]
  - Coordination abnormal [Not Recovered/Not Resolved]
  - Balance disorder [Not Recovered/Not Resolved]
  - Muscular weakness [Not Recovered/Not Resolved]
  - Toxicity to various agents [Recovered/Resolved]
  - Neuropathy peripheral [Not Recovered/Not Resolved]
  - Intervertebral disc disorder [Unknown]
  - Soft tissue swelling [Unknown]
  - Cerebellar atrophy [Not Recovered/Not Resolved]
  - Periorbital swelling [Unknown]
  - Cerebellar ataxia [Not Recovered/Not Resolved]
  - Cognitive disorder [Not Recovered/Not Resolved]
  - Aphasia [Unknown]

NARRATIVE: CASE EVENT DATE: 20110427
